FAERS Safety Report 8062494-2 (Version None)
Quarter: 2012Q1

REPORT INFORMATION
  Report Type: 
  Country: None (occurrence: None)
  Receive Date: 20120123
  Receipt Date: 20120116
  Transmission Date: 20120608
  Serious: Yes (Disabling, Other)
  Sender: FDA-Public Use
  Company Number: US-SANOFI-AVENTIS-2012SA003330

PATIENT
  Age: 68 Year
  Sex: Male

DRUGS (5)
  1. LANTUS [Suspect]
     Dosage: 50-60 UNITS TWICE DAILY 8-10 YEARS AGO
     Route: 058
     Dates: start: 20020101
  2. APIDRA [Suspect]
     Route: 065
  3. NOVOLOG [Concomitant]
  4. SOLOSTAR [Suspect]
  5. SOLOSTAR [Suspect]

REACTIONS (5)
  - DISABILITY [None]
  - URETHRAL STENOSIS [None]
  - BACK INJURY [None]
  - TREMOR [None]
  - CEREBROVASCULAR ACCIDENT [None]
